FAERS Safety Report 9145343 (Version 1)
Quarter: 2013Q1

REPORT INFORMATION
  Report Type: Spontaneous
  Country: US (occurrence: None)
  Receive Date: 20130226
  Receipt Date: 20130226
  Transmission Date: 20140127
  Serious: No
  Sender: FDA-Public Use
  Company Number: None

PATIENT
  Age: 50 Year
  Sex: Female
  Weight: 73.48 kg

DRUGS (1)
  1. MUCINEX DM [Suspect]
     Dosage: 1 TABLET QD PO
     Route: 048
     Dates: start: 20130216, end: 20130218

REACTIONS (4)
  - Dizziness [None]
  - Thinking abnormal [None]
  - Gait disturbance [None]
  - Blood pressure increased [None]
